FAERS Safety Report 12362086 (Version 1)
Quarter: 2016Q2

REPORT INFORMATION
  Report Type: Spontaneous
  Country: US (occurrence: US)
  Receive Date: 20160512
  Receipt Date: 20160512
  Transmission Date: 20160815
  Serious: No
  Sender: FDA-Public Use
  Company Number: US-UCBSA-2015035943

PATIENT
  Age: 30 Year
  Sex: Male

DRUGS (2)
  1. CIMZIA [Suspect]
     Active Substance: CERTOLIZUMAB PEGOL
     Dosage: 400 MG WAS DUE ON 05-NOV-2015 AS MAINTANENCE DOSE, ONLY ABLE TO ADMI, FOR 900038, EXP DATE: NOV-2016
     Dates: start: 20151105, end: 20151105
  2. CIMZIA [Suspect]
     Active Substance: CERTOLIZUMAB PEGOL
     Indication: CROHN^S DISEASE
     Dosage: 200 MG, EV 2 WEEKS(QOW)
     Dates: start: 20150910, end: 20151008

REACTIONS (5)
  - Needle issue [Unknown]
  - Product quality issue [Unknown]
  - Incorrect product storage [Unknown]
  - Drug ineffective [Unknown]
  - Incorrect dose administered [Unknown]

NARRATIVE: CASE EVENT DATE: 2015
